FAERS Safety Report 6845649-1 (Version None)
Quarter: 2010Q3

REPORT INFORMATION
  Report Type: 
  Country: None (occurrence: None)
  Receive Date: 20100715
  Receipt Date: 20070827
  Transmission Date: 20110219
  Serious: Yes (Other)
  Sender: FDA-Public Use
  Company Number: US-PFIZER INC-2007072909

PATIENT
  Sex: Female
  Weight: 97.7 kg

DRUGS (3)
  1. CHANTIX [Suspect]
     Indication: SMOKING CESSATION THERAPY
     Route: 048
     Dates: start: 20070820, end: 20070824
  2. VALSARTAN [Concomitant]
  3. ZYRTEC [Concomitant]

REACTIONS (2)
  - PRURITUS [None]
  - URTICARIA [None]
